FAERS Safety Report 7622973-6 (Version None)
Quarter: 2011Q3

REPORT INFORMATION
  Report Type: 
  Country: None (occurrence: None)
  Receive Date: 20110720
  Receipt Date: 20110718
  Transmission Date: 20111222
  Serious: Yes (Hospitalization, Disabling)
  Sender: FDA-Public Use
  Company Number: US-BRISTOL-MYERS SQUIBB COMPANY-15890502

PATIENT
  Age: 71 Year
  Sex: Female

DRUGS (4)
  1. LISINOPRIL AND HYDROCHLOROTHIAZIDE [Concomitant]
     Dosage: 1DF:20MG/25MG
  2. PRAVASTATIN SODIUM [Concomitant]
  3. ONGLYZA [Suspect]
     Indication: TYPE 2 DIABETES MELLITUS
     Route: 048
     Dates: start: 20110129, end: 20110701
  4. AMLODIPINE BESYLATE [Concomitant]

REACTIONS (1)
  - BLINDNESS [None]
